FAERS Safety Report 13893907 (Version 1)
Quarter: 2017Q3

REPORT INFORMATION
  Report Type: Spontaneous
  Country: US (occurrence: US)
  Receive Date: 20170822
  Receipt Date: 20170822
  Transmission Date: 20171127
  Serious: Yes (Hospitalization)
  Sender: FDA-Public Use
  Company Number: US-AQUA PHARMACEUTICALS-2017AQU000138

PATIENT

DRUGS (1)
  1. ACTICLATE [Suspect]
     Active Substance: DOXYCYCLINE HYCLATE
     Indication: ACNE
     Dosage: 1 DF, QD
     Route: 048
     Dates: start: 201704

REACTIONS (1)
  - Oesophagitis [Unknown]

NARRATIVE: CASE EVENT DATE: 201704
